APPROVED DRUG PRODUCT: MAXZIDE-25
Active Ingredient: HYDROCHLOROTHIAZIDE; TRIAMTERENE
Strength: 25MG;37.5MG
Dosage Form/Route: TABLET;ORAL
Application: N019129 | Product #003 | TE Code: AB
Applicant: AUROBINDO PHARMA USA INC
Approved: May 13, 1988 | RLD: Yes | RS: No | Type: RX